FAERS Safety Report 19652311 (Version 3)
Quarter: 2021Q3

REPORT INFORMATION
  Report Type: Spontaneous
  Country: SE (occurrence: SE)
  Receive Date: 20210803
  Receipt Date: 20210910
  Transmission Date: 20211014
  Serious: Yes (Death)
  Sender: FDA-Public Use
  Company Number: SE-SA-2021SA240927

PATIENT
  Sex: Male

DRUGS (1)
  1. CAMPATH [Suspect]
     Active Substance: ALEMTUZUMAB
     Dosage: 300 MG, Q3W
     Dates: start: 20210607, end: 20210623

REACTIONS (2)
  - Ill-defined disorder [Fatal]
  - Disease progression [Fatal]
